FAERS Safety Report 21322695 (Version 2)
Quarter: 2022Q4

REPORT INFORMATION
  Report Type: Spontaneous
  Country: US (occurrence: US)
  Receive Date: 20220912
  Receipt Date: 20221229
  Transmission Date: 20230113
  Serious: No
  Sender: FDA-Public Use
  Company Number: US-BRISTOL-MYERS SQUIBB COMPANY-2022-104356

PATIENT
  Age: 59 Year
  Sex: Female

DRUGS (1)
  1. REVLIMID [Suspect]
     Active Substance: LENALIDOMIDE
     Indication: Plasma cell myeloma
     Dosage: DAILY FOR 14 DAYS ON
     Route: 048
     Dates: start: 20220715

REACTIONS (6)
  - Weight increased [Unknown]
  - Fluid retention [Unknown]
  - Blood glucose increased [Unknown]
  - Off label use [Unknown]
  - Urticaria [Unknown]
  - Rash [Unknown]
